FAERS Safety Report 19193162 (Version 2)
Quarter: 2021Q2

REPORT INFORMATION
  Report Type: Spontaneous
  Country: JP (occurrence: JP)
  Receive Date: 20210428
  Receipt Date: 20210527
  Transmission Date: 20210717
  Serious: Yes (Hospitalization)
  Sender: FDA-Public Use
  Company Number: JP-ELI_LILLY_AND_COMPANY-JP202104009813

PATIENT
  Sex: Female
  Weight: 42 kg

DRUGS (5)
  1. CAMSHIA [Concomitant]
     Active Substance: AMLODIPINE BESYLATE\CANDESARTAN CILEXETIL
     Indication: HYPERTENSION
     Dosage: 1 DOSAGE FORM, DAILY
     Route: 048
  2. EQUA [Suspect]
     Active Substance: VILDAGLIPTIN
     Indication: HYPERGLYCAEMIA
     Dosage: 1 DOSAGE FORM, BID
     Route: 048
  3. TRULICITY [Suspect]
     Active Substance: DULAGLUTIDE
     Indication: TYPE 2 DIABETES MELLITUS
     Dosage: UNK, WEEKLY (1/W)
     Route: 058
  4. VOGLIBOSE [Concomitant]
     Active Substance: VOGLIBOSE
     Indication: HYPERGLYCAEMIA
     Dosage: 1 DOSAGE FORM, BID
     Route: 048
  5. PRAVASTATIN. [Concomitant]
     Active Substance: PRAVASTATIN
     Indication: HYPERLIPIDAEMIA
     Dosage: 1 DOSAGE FORM, DAILY
     Route: 048

REACTIONS (1)
  - Pemphigoid [Unknown]
